FAERS Safety Report 6041741-2 (Version None)
Quarter: 2009Q1

REPORT INFORMATION
  Report Type: 
  Country: None (occurrence: None)
  Receive Date: 20090116
  Receipt Date: 20090107
  Transmission Date: 20090719
  Serious: Yes (Death, Hospitalization)
  Sender: FDA-Public Use
  Company Number: JP-PFIZER INC-2008072322

PATIENT

DRUGS (11)
  1. SUNITINIB MALATE [Suspect]
     Dosage: 50 MG, 1X/DAY
     Route: 048
     Dates: start: 20080815, end: 20080822
  2. SUNITINIB MALATE [Suspect]
     Dosage: 37.5 MG, 1X/DAY
     Route: 048
     Dates: start: 20081006, end: 20081102
  3. TAKEPRON [Concomitant]
     Dosage: OD
     Route: 048
  4. THEOLONG [Concomitant]
     Dosage: UNK
     Route: 048
  5. AZELASTINE HCL [Concomitant]
     Dosage: UNK
     Route: 048
  6. MAGNESIUM OXIDE [Concomitant]
     Dosage: UNK
     Route: 048
  7. OXYCONTIN [Concomitant]
     Dosage: UNK
     Route: 048
  8. PREDONINE [Concomitant]
     Dosage: UNK
     Route: 048
     Dates: start: 20080929
  9. OMEPRAL [Concomitant]
     Dosage: UNK
     Route: 048
     Dates: start: 20080929
  10. CODEINE PHOSPHATE [Concomitant]
     Dosage: UNK
     Dates: start: 20080929
  11. FENTANYL [Concomitant]
     Dosage: UNK
     Dates: start: 20080927

REACTIONS (2)
  - METASTASES TO CENTRAL NERVOUS SYSTEM [None]
  - PANCREATITIS [None]
